FAERS Safety Report 7388301-9 (Version None)
Quarter: 2011Q2

REPORT INFORMATION
  Report Type: 
  Country: None (occurrence: None)
  Receive Date: 20110401
  Receipt Date: 20110324
  Transmission Date: 20111010
  Serious: Yes (Death)
  Sender: FDA-Public Use
  Company Number: US-BAYER-201024497NA

PATIENT
  Sex: Female
  Weight: 79 kg

DRUGS (20)
  1. MAGNEVIST [Suspect]
     Indication: NUCLEAR MAGNETIC RESONANCE IMAGING
     Dosage: 15.5 ML (DAILY DOSE), ,
     Route: 042
     Dates: start: 20040812, end: 20040812
  2. LEVOFLOXACIN [Concomitant]
  3. WARFARIN [Concomitant]
     Dosage: 1 MG (DAILY DOSE), QD, ORAL
     Route: 048
  4. OPTIMARK [Suspect]
     Indication: IMAGING PROCEDURE
  5. LEVOTHYROXINE SODIUM [Concomitant]
  6. AMBIEN [Concomitant]
  7. SEVELAMER [Concomitant]
  8. SYNTHROID [Concomitant]
  9. MULTIHANCE [Suspect]
     Indication: IMAGING PROCEDURE
  10. PROHANCE [Suspect]
     Indication: IMAGING PROCEDURE
  11. CONTRAST MEDIA [Suspect]
  12. MIDODRINE HYDROCHLORIDE [Concomitant]
  13. GABAPENTIN [Concomitant]
  14. LEXAPRO [Concomitant]
  15. TRAMADOL [Concomitant]
  16. MAGNEVIST [Suspect]
     Indication: NUCLEAR MAGNETIC RESONANCE IMAGING ABDOMINAL
     Dosage: 30 ML (DAILY DOSE), ,
     Route: 042
     Dates: start: 20040806, end: 20040806
  17. MAGNEVIST [Suspect]
     Indication: ANGIOGRAM
  18. RENVOL [Concomitant]
     Dosage: 4 TABS TID
  19. SENSIPAR [Concomitant]
  20. OMNISCAN [Suspect]
     Indication: ANGIOGRAM
     Dates: start: 20060530, end: 20060530

REACTIONS (24)
  - MUSCULAR WEAKNESS [None]
  - FIBROSIS [None]
  - GENERAL PHYSICAL HEALTH DETERIORATION [None]
  - ARTHRITIS [None]
  - SKIN HYPERPIGMENTATION [None]
  - SWELLING [None]
  - ANXIETY [None]
  - BURNING SENSATION [None]
  - SCAR [None]
  - MUSCULOSKELETAL STIFFNESS [None]
  - OEDEMA PERIPHERAL [None]
  - SKIN TIGHTNESS [None]
  - SKIN INDURATION [None]
  - PAIN [None]
  - ARTHRALGIA [None]
  - JOINT STIFFNESS [None]
  - NEPHROGENIC SYSTEMIC FIBROSIS [None]
  - BONE PAIN [None]
  - DEFORMITY [None]
  - MYALGIA [None]
  - OEDEMA [None]
  - DEPRESSION [None]
  - MOBILITY DECREASED [None]
  - PAIN IN EXTREMITY [None]
